FAERS Safety Report 19932392 (Version 1)
Quarter: 2021Q4

REPORT INFORMATION
  Report Type: Spontaneous
  Country: US (occurrence: US)
  Receive Date: 20211007
  Receipt Date: 20211007
  Transmission Date: 20220303
  Serious: Yes (Death)
  Sender: FDA-Public Use
  Company Number: None

PATIENT
  Age: 82 Year
  Sex: Male
  Weight: 76.75 kg

DRUGS (6)
  1. CAPECITABINE [Suspect]
     Active Substance: CAPECITABINE
     Indication: Colon cancer
     Dosage: ?          OTHER FREQUENCY:BID 14 OF 21 DAYS;
     Route: 048
  2. CARVEDILOL [Concomitant]
     Active Substance: CARVEDILOL
  3. GLIPIZIDE [Concomitant]
     Active Substance: GLIPIZIDE
  4. LOSARTAN [Concomitant]
     Active Substance: LOSARTAN
  5. METFORMIN [Concomitant]
     Active Substance: METFORMIN HYDROCHLORIDE
  6. VICTOZA [Concomitant]
     Active Substance: LIRAGLUTIDE

REACTIONS (1)
  - Death [None]

NARRATIVE: CASE EVENT DATE: 20210916
